FAERS Safety Report 7505834-2 (Version None)
Quarter: 2011Q2

REPORT INFORMATION
  Report Type: 
  Country: None (occurrence: None)
  Receive Date: 20110526
  Receipt Date: 20110516
  Transmission Date: 20111010
  Serious: Yes (Hospitalization)
  Sender: FDA-Public Use
  Company Number: DE-ELI_LILLY_AND_COMPANY-DE201105004504

PATIENT
  Age: 80 Year
  Sex: Female

DRUGS (8)
  1. CALCILAC [Concomitant]
  2. TARGIN [Concomitant]
  3. MCP [Concomitant]
  4. PANTOPRAZOLE [Concomitant]
  5. ARCOXIA [Concomitant]
  6. RAMIPLUS STADA [Concomitant]
  7. FORTEO [Suspect]
     Indication: OSTEOPOROSIS
     Dosage: UNK, QD
     Route: 058
     Dates: start: 20100216
  8. ORTOTON [Concomitant]

REACTIONS (1)
  - CARPAL TUNNEL SYNDROME [None]
